FAERS Safety Report 5898635-2 (Version None)
Quarter: 2008Q3

REPORT INFORMATION
  Report Type: 
  Country: None (occurrence: None)
  Receive Date: 20080925
  Receipt Date: 20080306
  Transmission Date: 20090109
  Serious: Yes (Hospitalization)
  Sender: FDA-Public Use
  Company Number: A0713845A

PATIENT
  Age: 31 Year
  Sex: Male

DRUGS (2)
  1. WELLBUTRIN XL [Suspect]
     Indication: DRUG USE FOR UNKNOWN INDICATION
     Dosage: 300MG PER DAY
     Route: 048
  2. VALIUM [Concomitant]

REACTIONS (2)
  - INTENTIONAL DRUG MISUSE [None]
  - SUICIDAL IDEATION [None]
